FAERS Safety Report 21081557 (Version 1)
Quarter: 2022Q3

REPORT INFORMATION
  Report Type: Spontaneous
  Country: US (occurrence: None)
  Receive Date: 20220713
  Receipt Date: 20220713
  Transmission Date: 20221026
  Serious: No
  Sender: FDA-Public Use
  Company Number: None

PATIENT
  Age: 60 Year
  Sex: Female
  Weight: 58.05 kg

DRUGS (9)
  1. RECLAST [Suspect]
     Active Substance: ZOLEDRONIC ACID
     Indication: Osteoporosis
     Dates: start: 20220411, end: 20220411
  2. Synthroid 75 gm [Concomitant]
  3. Estrodiol .01% 3x wkly [Concomitant]
  4. Lamictal 100 gm Epipen [Concomitant]
  5. Desert Harvest Aloe [Concomitant]
  6. FISH OIL\OMEGA-3 FATTY ACIDS [Concomitant]
     Active Substance: FISH OIL\OMEGA-3 FATTY ACIDS
  7. Magnesium 500 mg K2 4,500 [Concomitant]
  8. VITAMIN B COMPLEX [Concomitant]
     Active Substance: CYANOCOBALAMIN\DEXPANTHENOL\NIACINAMIDE\PYRIDOXINE HYDROCHLORIDE\RIBOFLAVIN 5^-PHOSPHATE SODIUM\THIA
  9. Quercetin 500 [Concomitant]

REACTIONS (4)
  - Dizziness [None]
  - Fall [None]
  - Abdominal pain upper [None]
  - Infusion related reaction [None]

NARRATIVE: CASE EVENT DATE: 20220411
